FAERS Safety Report 4356060-X (Version None)
Quarter: 2004Q2

REPORT INFORMATION
  Report Type: 
  Country: None (occurrence: None)
  Receive Date: 20040511
  Receipt Date: 20040430
  Transmission Date: 20050107
  Serious: Yes (Life-Threatening, Hospitalization)
  Sender: FDA-Public Use
  Company Number: CH-MERCK-0404CHE00038

PATIENT
  Age: 67 Year
  Sex: Female

DRUGS (2)
  1. BISOPROLOL FUMARATE [Concomitant]
     Indication: HYPERTENSION
     Route: 048
  2. VIOXX [Suspect]
     Indication: BACK PAIN
     Route: 048
     Dates: end: 20040209

REACTIONS (10)
  - CEREBRAL ATROPHY [None]
  - CONFUSIONAL STATE [None]
  - DIALYSIS [None]
  - DISSEMINATED INTRAVASCULAR COAGULATION [None]
  - ELECTROENCEPHALOGRAM ABNORMAL [None]
  - RENAL FAILURE [None]
  - SEPSIS [None]
  - SKIN NECROSIS [None]
  - SOMNOLENCE [None]
  - STREPTOCOCCAL SEPSIS [None]
